FAERS Safety Report 6038072-3 (Version None)
Quarter: 2009Q1

REPORT INFORMATION
  Report Type: 
  Country: None (occurrence: None)
  Receive Date: 20090115
  Receipt Date: 20090112
  Transmission Date: 20090719
  Serious: Yes (Hospitalization)
  Sender: FDA-Public Use
  Company Number: US-BIOGENIDEC-2008BI034005

PATIENT
  Sex: Female

DRUGS (1)
  1. AVONEX [Suspect]
     Indication: MULTIPLE SCLEROSIS
     Route: 030
     Dates: start: 20080501

REACTIONS (5)
  - ATAXIA [None]
  - GENERAL SYMPTOM [None]
  - HEMIPARESIS [None]
  - HYPOAESTHESIA FACIAL [None]
  - NUCLEAR MAGNETIC RESONANCE IMAGING ABNORMAL [None]
